FAERS Safety Report 8213969-4 (Version None)
Quarter: 2012Q1

REPORT INFORMATION
  Report Type: 
  Country: None (occurrence: None)
  Receive Date: 20120316
  Receipt Date: 20120313
  Transmission Date: 20120608
  Serious: No
  Sender: FDA-Public Use
  Company Number: US-PFIZER INC-2012067488

PATIENT
  Sex: Female
  Weight: 102.49 kg

DRUGS (10)
  1. LYRICA [Suspect]
     Indication: PARAESTHESIA
  2. FLEXERIL [Concomitant]
     Indication: MUSCULOSKELETAL PAIN
     Dosage: 10MG ONCE IN A DAY AS NEEDED
  3. FISH OIL [Concomitant]
     Indication: BLOOD CHOLESTEROL INCREASED
  4. FISH OIL [Concomitant]
  5. LYRICA [Suspect]
     Indication: FIBROMYALGIA
     Dosage: 50 MG, 3X/DAY
     Route: 048
     Dates: start: 20110101
  6. CYMBALTA [Suspect]
     Indication: MUSCULOSKELETAL PAIN
     Dosage: 30 MG, 2X/DAY
     Dates: start: 20110801
  7. CYMBALTA [Suspect]
     Indication: BACK PAIN
  8. PROTONIX [Concomitant]
     Indication: GASTROOESOPHAGEAL REFLUX DISEASE
     Dosage: 40 MG, 2X/DAY
     Dates: start: 20110101
  9. FISH OIL [Concomitant]
     Indication: PAIN
     Dosage: UNK
  10. CRESTOR [Concomitant]
     Indication: BLOOD CHOLESTEROL INCREASED
     Dosage: 5 MG, DAILY

REACTIONS (2)
  - SOMNOLENCE [None]
  - FATIGUE [None]
